FAERS Safety Report 8521487-9 (Version None)
Quarter: 2012Q3

REPORT INFORMATION
  Report Type: 
  Country: None (occurrence: None)
  Receive Date: 20120719
  Receipt Date: 20120704
  Transmission Date: 20120928
  Serious: Yes (Other)
  Sender: FDA-Public Use
  Company Number: SE-WATSON-2012-11954

PATIENT
  Age: 57 Year
  Sex: Male

DRUGS (1)
  1. TRAMADOL HCL [Suspect]
     Indication: PRODUCT USED FOR UNKNOWN INDICATION
     Dosage: UNK
     Route: 065

REACTIONS (5)
  - MYOCLONUS [None]
  - ABDOMINAL PAIN [None]
  - PSYCHOTIC DISORDER [None]
  - LOSS OF CONSCIOUSNESS [None]
  - APNOEA [None]
